FAERS Safety Report 8400229 (Version 2)
Quarter: 2013Q1

REPORT INFORMATION
  Report Type: Spontaneous
  Country: US (occurrence: US)
  Receive Date: 20120210
  Receipt Date: 20130219
  Transmission Date: 20140127
  Serious: No
  Sender: FDA-Public Use
  Company Number: US-BRISTOL-MYERS SQUIBB COMPANY-16279507

PATIENT
  Age: 40 Year
  Sex: Female

DRUGS (6)
  1. ORENCIA [Suspect]
     Indication: RHEUMATOID ARTHRITIS
     Dosage: LAST INF:27MAY2011,09MAR2011,EXPIRY DT:NOV2013.
     Route: 042
     Dates: start: 20110309, end: 20110527
  2. ORENCIA [Suspect]
     Indication: PSORIASIS
     Dosage: LAST INF:27MAY2011,09MAR2011,EXPIRY DT:NOV2013.
     Route: 042
     Dates: start: 20110309, end: 20110527
  3. MORPHINE SULPHATE [Concomitant]
     Dosage: DOSE:15MG,8QD,60MG TID
  4. KLONOPIN [Concomitant]
  5. ZANAFLEX [Concomitant]
  6. LYRICA [Concomitant]
     Dosage: FREQ:Q HRS

REACTIONS (3)
  - Impaired gastric emptying [Unknown]
  - Weight decreased [Unknown]
  - Drug ineffective [Unknown]
